FAERS Safety Report 5340260-6 (Version None)
Quarter: 2007Q2

REPORT INFORMATION
  Report Type: 
  Country: None (occurrence: None)
  Receive Date: 20070531
  Receipt Date: 20070530
  Transmission Date: 20071010
  Serious: Yes (Hospitalization)
  Sender: FDA-Public Use
  Company Number: US-BRISTOL-MYERS SQUIBB COMPANY-13796883

PATIENT
  Age: 47 Year
  Sex: Female
  Weight: 85 kg

DRUGS (10)
  1. CETUXIMAB [Suspect]
     Indication: BREAST CANCER
     Route: 042
     Dates: start: 20070518, end: 20070518
  2. CARBOPLATIN [Suspect]
     Indication: BREAST CANCER
     Route: 042
     Dates: start: 20070518, end: 20070518
  3. IRINOTECAN HCL [Suspect]
     Indication: BREAST CANCER
     Route: 042
     Dates: start: 20070518, end: 20070518
  4. LITHIUM CARBONATE [Concomitant]
  5. RISPERDAL [Concomitant]
     Route: 048
  6. SEROQUEL [Concomitant]
     Route: 048
  7. PERCOCET [Concomitant]
     Indication: PAIN
  8. PREDNISONE TAB [Concomitant]
  9. OXYGEN [Concomitant]
  10. CLOTRIMAZOLE [Concomitant]

REACTIONS (3)
  - DEHYDRATION [None]
  - DIARRHOEA [None]
  - FEBRILE NEUTROPENIA [None]
